FAERS Safety Report 8047025-5 (Version None)
Quarter: 2012Q1

REPORT INFORMATION
  Report Type: 
  Country: None (occurrence: None)
  Receive Date: 20120116
  Receipt Date: 20120109
  Transmission Date: 20120608
  Serious: Yes (Other)
  Sender: FDA-Public Use
  Company Number: US-BAYER-2012-003835

PATIENT
  Age: 19 Year
  Sex: Female
  Weight: 52 kg

DRUGS (17)
  1. YAZ [Suspect]
  2. ORTHO TRI-CYCLEN LO [Concomitant]
     Indication: CONTRACEPTION
     Dosage: UNK, QD
     Route: 048
     Dates: start: 20070226, end: 20070829
  3. OXYCODONE HCL AND ACETAMINOPHEN [Concomitant]
     Dosage: UNK
     Route: 048
     Dates: start: 20071022, end: 20091112
  4. APAP W/ CODEINE [Concomitant]
     Indication: PAIN
     Dosage: UNK UNK, Q4HR
     Route: 048
     Dates: start: 20071016, end: 20091112
  5. BENTYL [Concomitant]
  6. ACETAMINOPHEN AND HYDROCODONE BITARTRATE [Concomitant]
     Indication: PAIN
  7. NITROFURANTOIN [Concomitant]
     Dosage: 100 MG, BID
     Route: 048
     Dates: start: 20071022, end: 20091112
  8. MACROBID [Concomitant]
  9. NSAID'S [Concomitant]
     Dosage: UNK
     Dates: start: 20060101
  10. DICYCLOMINE [Concomitant]
     Dosage: 20 MG, QID
     Dates: start: 20070828
  11. YAZ [Suspect]
     Indication: PREMENSTRUAL SYNDROME
  12. IBUPROFEN [Concomitant]
     Dosage: 800 MG, UNK
     Dates: start: 20061204, end: 20090327
  13. YAZ [Suspect]
     Indication: ORAL CONTRACEPTION
     Dosage: UNK
     Dates: start: 20070829, end: 20080501
  14. ACETAMINOPHEN AND HYDROCODONE BITARTRATE [Concomitant]
     Indication: ABDOMINAL PAIN UPPER
     Dosage: UNK
     Route: 048
     Dates: start: 20071009, end: 20091112
  15. PROMETHAZINE [Concomitant]
     Indication: NAUSEA
     Dosage: 12.5 MG, TID
     Route: 048
     Dates: start: 20071009, end: 20091112
  16. DIPHENOXYLATE/ATROPINE [DIPHENOXYLATE HYDROCHLORIDE] [Concomitant]
     Indication: DIARRHOEA
     Dosage: UNK UNK, TID
     Route: 048
     Dates: start: 20071009, end: 20090714
  17. PERCOCET [Concomitant]

REACTIONS (6)
  - MALAISE [None]
  - ANXIETY [None]
  - GASTRIC DISORDER [None]
  - DEPRESSION [None]
  - GALLBLADDER DISORDER [None]
  - CHOLECYSTITIS CHRONIC [None]
